FAERS Safety Report 6305860-5 (Version None)
Quarter: 2009Q3

REPORT INFORMATION
  Report Type: 
  Country: None (occurrence: None)
  Receive Date: 20090812
  Receipt Date: 20090807
  Transmission Date: 20100115
  Serious: Yes (Other)
  Sender: FDA-Public Use
  Company Number: AU-WYE-G04212509

PATIENT

DRUGS (1)
  1. EFFEXOR [Suspect]

REACTIONS (1)
  - DRUG ABUSE [None]
